FAERS Safety Report 24967646 (Version 1)
Quarter: 2025Q1

REPORT INFORMATION
  Report Type: Spontaneous
  Country: JP (occurrence: JP)
  Receive Date: 20250214
  Receipt Date: 20250214
  Transmission Date: 20250409
  Serious: Yes (Death, Other)
  Sender: GLAXOSMITHKLINE
  Company Number: JP-GSKNCCC-Case-02227420_AE-93968

PATIENT

DRUGS (1)
  1. LAMICTAL [Suspect]
     Active Substance: LAMOTRIGINE
     Indication: Bipolar disorder
     Dosage: 25 MG, TID (MORNING, AFTERNOON, EVENING)

REACTIONS (7)
  - Drug reaction with eosinophilia and systemic symptoms [Fatal]
  - Eczema [Unknown]
  - Lymphadenopathy [Unknown]
  - Pyrexia [Unknown]
  - Drug eruption [Unknown]
  - Prescribed overdose [Unknown]
  - Inappropriate schedule of product administration [Unknown]
